FAERS Safety Report 20246193 (Version 1)
Quarter: 2021Q4

REPORT INFORMATION
  Report Type: Spontaneous
  Country: US (occurrence: None)
  Receive Date: 20211228
  Receipt Date: 20211228
  Transmission Date: 20220304
  Serious: Yes (Hospitalization)
  Sender: FDA-Public Use
  Company Number: None

PATIENT
  Age: 33 Year
  Sex: Male
  Weight: 66.15 kg

DRUGS (2)
  1. VENLAFAXINE [Suspect]
     Active Substance: VENLAFAXINE HYDROCHLORIDE
     Indication: Neuropathy peripheral
     Dosage: FREQUENCY : DAILY;?
     Route: 048
  2. Unknown botanical substance [Concomitant]

REACTIONS (11)
  - Mental status changes [None]
  - Blood pressure increased [None]
  - Aspartate aminotransferase increased [None]
  - White blood cell count increased [None]
  - Mydriasis [None]
  - Hyperhidrosis [None]
  - Agitation [None]
  - Muscle tone disorder [None]
  - Clonus [None]
  - Serotonin syndrome [None]
  - Fluid retention [None]

NARRATIVE: CASE EVENT DATE: 20210704
